FAERS Safety Report 9468434 (Version 1)
Quarter: 2013Q3

REPORT INFORMATION
  Report Type: Spontaneous
  Country: US (occurrence: US)
  Receive Date: 20130821
  Receipt Date: 20130821
  Transmission Date: 20140515
  Serious: No
  Sender: FDA-Public Use
  Company Number: US-PFIZER INC-2013239146

PATIENT
  Age: 64 Year
  Sex: Male
  Weight: 131.06 kg

DRUGS (16)
  1. XELJANZ [Suspect]
     Indication: RHEUMATOID ARTHRITIS
     Dosage: 5 MG, 2X/DAY
     Route: 048
  2. FUROSEMIDE [Concomitant]
     Dosage: 20 MG, UNK
  3. PREDNISONE [Concomitant]
     Dosage: 1 MG, UNK
  4. COLCHICINE [Concomitant]
     Dosage: 0.6 MG, UNK
  5. LANTUS [Concomitant]
     Dosage: 100/ML, UNK
  6. METFORMIN [Concomitant]
     Dosage: 500 MG, UNK
  7. SIMVASTATIN [Concomitant]
     Dosage: 10 MG, UNK
  8. AMLOD/BENAZP [Concomitant]
     Dosage: AMLODIPINE BESILATE 10MG/ BENAZEPRIL HYDROCHLORIDE 20MG, UNK
  9. HYDROCHLOROTHIAZIDE [Concomitant]
     Dosage: 12.5 MG, UNK
  10. KLOR-CON M15 [Concomitant]
     Dosage: UNK
  11. ASPIRIN (E.C.) [Concomitant]
     Dosage: 81 MG, UNK
  12. ALLOPURINOL [Concomitant]
     Dosage: 100 MG, UNK
  13. HYDROCO/APAP [Concomitant]
     Dosage: HYDROCODONE BITARTRATE 5MG/ PARACETAMOL 325MG, UNK
  14. WARFARIN [Concomitant]
     Dosage: 1 MG, UNK
  15. FOLIC ACID [Concomitant]
     Dosage: UNK
  16. VITAMIN D3 [Concomitant]
     Dosage: 10000 IU, UNK

REACTIONS (2)
  - Pain in extremity [Unknown]
  - Gout [Unknown]
